FAERS Safety Report 17346941 (Version 1)
Quarter: 2020Q1

REPORT INFORMATION
  Report Type: Spontaneous
  Country: TW (occurrence: TW)
  Receive Date: 20200130
  Receipt Date: 20200130
  Transmission Date: 20200409
  Serious: Yes (Other)
  Sender: FDA-Public Use
  Company Number: TW-SUN PHARMACEUTICAL INDUSTRIES LTD-2020RR-234975

PATIENT
  Age: 80 Year
  Sex: Male

DRUGS (4)
  1. SULPHAMETHOXAZOLE+TRIMETHOPRIM [Suspect]
     Active Substance: SULFAMETHOXAZOLE\TRIMETHOPRIM
     Indication: GRANULOMATOUS DERMATITIS
     Dosage: 1600 MILLIGRAM, DAILY
     Route: 065
  2. CLARITHROMYCIN. [Suspect]
     Active Substance: CLARITHROMYCIN
     Indication: GRANULOMATOUS DERMATITIS
     Dosage: 1000 MILLIGRAM, DAILY
     Route: 065
  3. CLARITHROMYCIN. [Suspect]
     Active Substance: CLARITHROMYCIN
     Dosage: 1000 MILLIGRAM, DAILY
     Route: 065
  4. MOXIFLOXACIN. [Suspect]
     Active Substance: MOXIFLOXACIN
     Indication: GRANULOMATOUS DERMATITIS
     Dosage: 400 MILLIGRAM, DAILY
     Route: 065

REACTIONS (2)
  - Electrocardiogram QT prolonged [Unknown]
  - Jarisch-Herxheimer reaction [Recovered/Resolved]
